FAERS Safety Report 10142768 (Version 1)
Quarter: 2014Q2

REPORT INFORMATION
  Report Type: Spontaneous
  Country: CA (occurrence: None)
  Receive Date: 20140428
  Receipt Date: 20140428
  Transmission Date: 20141212
  Serious: Yes (Hospitalization)
  Sender: FDA-Public Use
  Company Number: CA-015443

PATIENT
  Age: 90 Year
  Sex: Male

DRUGS (4)
  1. FIRMAGON /01764801/ (FIRMAGON) 80 MG (NOT SPECIFIED) [Suspect]
     Indication: PROSTATE CANCER
     Dosage: (80 MG 1X/MONTH SUBCUTANEOUS)
     Route: 058
     Dates: start: 20131107
  2. NITROSPRAY [Concomitant]
  3. LIPITOR [Concomitant]
  4. COVERSYL PLUS /06377001/ [Concomitant]

REACTIONS (2)
  - Lung infection [None]
  - Thrombosis [None]
